FAERS Safety Report 8385961-0 (Version None)
Quarter: 2012Q2

REPORT INFORMATION
  Report Type: 
  Country: None (occurrence: None)
  Receive Date: 20120525
  Receipt Date: 20120522
  Transmission Date: 20120825
  Serious: Yes (Hospitalization)
  Sender: FDA-Public Use
  Company Number: KR-JNJFOC-20120517632

PATIENT
  Sex: Male

DRUGS (3)
  1. USTEKINUMAB [Suspect]
     Route: 058
     Dates: start: 20120227
  2. DAIVOBET [Concomitant]
     Dates: start: 20110725
  3. USTEKINUMAB [Suspect]
     Indication: PSORIASIS
     Route: 058
     Dates: start: 20120326

REACTIONS (1)
  - PNEUMONIA [None]
